FAERS Safety Report 9035789 (Version 1)
Quarter: 2013Q1

REPORT INFORMATION
  Report Type: Report from Study
  Country: US (occurrence: US)
  Receive Date: 20130129
  Receipt Date: 20130129
  Transmission Date: 20140127
  Serious: No
  Sender: FDA-Public Use
  Company Number: US-ABBOTT-12P-163-0926363-00

PATIENT
  Age: 59 Year
  Sex: Male

DRUGS (6)
  1. HUMIRA 40 MG/0.8 ML PEN [Suspect]
     Indication: CROHN^S DISEASE
     Dosage: LOADING DOSE
     Dates: start: 20120404
  2. ASACOL [Concomitant]
     Indication: CROHN^S DISEASE
     Dosage: 400 MG 3 TABS THREE TIMES DAILY
  3. COREG [Concomitant]
     Indication: CARDIAC FAILURE CONGESTIVE
  4. COREG [Concomitant]
     Indication: INFECTION
  5. QUINAPRIL [Concomitant]
     Indication: CARDIAC FAILURE CONGESTIVE
  6. QUINAPRIL [Concomitant]
     Indication: INFECTION

REACTIONS (1)
  - Injection site pain [Recovered/Resolved]
